FAERS Safety Report 6217720-9 (Version None)
Quarter: 2009Q2

REPORT INFORMATION
  Report Type: 
  Country: None (occurrence: None)
  Receive Date: 20090604
  Receipt Date: 20090604
  Transmission Date: 20091009
  Serious: Yes (Other)
  Sender: FDA-Public Use
  Company Number: None

PATIENT
  Age: 4 Year
  Sex: Male
  Weight: 18.1439 kg

DRUGS (1)
  1. SINGULAIR [Suspect]
     Dosage: 1 DAILY PO, DAYS
     Route: 048
     Dates: start: 20090519, end: 20090529

REACTIONS (7)
  - AGGRESSION [None]
  - CRYING [None]
  - FATIGUE [None]
  - HALLUCINATION [None]
  - INSOMNIA [None]
  - MOOD ALTERED [None]
  - PERSONALITY CHANGE [None]
